FAERS Safety Report 9215513 (Version 2)
Quarter: 2014Q1

REPORT INFORMATION
  Report Type: Spontaneous
  Country: US (occurrence: US)
  Receive Date: 20130406
  Receipt Date: 20140206
  Transmission Date: 20141002
  Serious: Yes (Hospitalization)
  Sender: FDA-Public Use
  Company Number: US-B.I. PHARMACEUTICALS,INC./RIDGEFIELD-2013-BI-09123BP

PATIENT
  Age: 87 Year
  Sex: Male
  Weight: 77.11 kg

DRUGS (6)
  1. PRADAXA [Suspect]
     Indication: ANTICOAGULANT THERAPY
     Route: 048
     Dates: start: 20111129, end: 20111130
  2. PRADAXA [Suspect]
     Indication: ATRIAL FIBRILLATION
  3. LOPRESSOR [Concomitant]
  4. BUFFERIN [Concomitant]
     Route: 048
     Dates: start: 20111129
  5. SIMVASTATIN [Concomitant]
     Route: 048
  6. BENADRYL [Concomitant]
     Dosage: 25 MG
     Route: 048

REACTIONS (7)
  - Arterial haemorrhage [Recovered/Resolved]
  - Haematoma [Unknown]
  - Hypotension [Recovered/Resolved]
  - Anaemia [Unknown]
  - Cervical vertebral fracture [Unknown]
  - Road traffic accident [Unknown]
  - Contusion [Unknown]
